FAERS Safety Report 23816865 (Version 2)
Quarter: 2024Q2

REPORT INFORMATION
  Report Type: Spontaneous
  Country: FR (occurrence: FR)
  Receive Date: 20240504
  Receipt Date: 20240508
  Transmission Date: 20240716
  Serious: Yes (Hospitalization, Other)
  Sender: FDA-Public Use
  Company Number: None

PATIENT
  Age: 11 Year
  Sex: Male

DRUGS (13)
  1. LAMPRENE [Suspect]
     Active Substance: CLOFAZIMINE
     Indication: Leprosy
     Dosage: 50 MG, QD
     Route: 065
     Dates: start: 20110909, end: 20120427
  2. AMITRIPTYLINE HYDROCHLORIDE [Suspect]
     Active Substance: AMITRIPTYLINE HYDROCHLORIDE
     Indication: Leprosy
     Dosage: 50 DOSAGE FORM, QD
     Route: 065
     Dates: start: 20110909, end: 201112
  3. PREDNISONE [Suspect]
     Active Substance: PREDNISONE
     Indication: Leprosy
     Dosage: UNK
     Route: 065
     Dates: start: 20110909, end: 20111110
  4. RIFAMPIN [Suspect]
     Active Substance: RIFAMPIN
     Indication: Leprosy
     Dosage: 600 MG, QD,  G?LULE
     Route: 065
     Dates: start: 20110909, end: 20120427
  5. LYRICA [Suspect]
     Active Substance: PREGABALIN
     Indication: Leprosy
     Dosage: 150 MG, QD
     Route: 065
     Dates: start: 20110909, end: 201212
  6. LYRICA [Suspect]
     Active Substance: PREGABALIN
     Indication: Leprosy
  7. LYRICA [Suspect]
     Active Substance: PREGABALIN
     Indication: Leprosy
  8. PLAQUENIL [Suspect]
     Active Substance: HYDROXYCHLOROQUINE SULFATE
     Indication: Leprosy
     Dosage: 200 MG, QD
     Route: 065
     Dates: start: 20110909, end: 20120106
  9. CHOLECALCIFEROL [Suspect]
     Active Substance: CHOLECALCIFEROL
     Indication: Product used for unknown indication
     Dosage: UNK
     Route: 065
     Dates: start: 20110909, end: 20120106
  10. HYDROCORTISONE [Suspect]
     Active Substance: HYDROCORTISONE
     Indication: Leprosy
     Dosage: 20 MG, QD
     Route: 065
     Dates: start: 20111111, end: 20120427
  11. DAPSONE\FERROUS OXALATE [Suspect]
     Active Substance: DAPSONE\FERROUS OXALATE
     Indication: Leprosy
     Dosage: 100 MG, QD
     Route: 065
     Dates: start: 20110909, end: 20120427
  12. ESOMEPRAZOLE [Suspect]
     Active Substance: ESOMEPRAZOLE
     Indication: Product used for unknown indication
     Dosage: 20 MG, QD
     Route: 065
     Dates: start: 20110909, end: 201112
  13. ACTONEL [Suspect]
     Active Substance: RISEDRONATE SODIUM
     Indication: Product used for unknown indication
     Dosage: 35 MG, QD
     Route: 065
     Dates: start: 20110909, end: 20111118

REACTIONS (4)
  - Preterm premature rupture of membranes [Recovered/Resolved]
  - Foetal growth restriction [Recovered/Resolved]
  - Autism spectrum disorder [Not Recovered/Not Resolved]
  - Maternal exposure during pregnancy [Recovered/Resolved]
